FAERS Safety Report 12784402 (Version 1)
Quarter: 2016Q3

REPORT INFORMATION
  Report Type: Spontaneous
  Country: CA (occurrence: CA)
  Receive Date: 20160927
  Receipt Date: 20160927
  Transmission Date: 20161109
  Serious: Yes (Other)
  Sender: FDA-Public Use
  Company Number: CA-BEH-2013037895

PATIENT
  Age: 49 Year
  Sex: Male
  Weight: 178 kg

DRUGS (4)
  1. PRIVIGEN [Suspect]
     Active Substance: HUMAN IMMUNOGLOBULIN G
     Dosage: 20 GM; 105 GM/DAY TOTAL
     Route: 042
     Dates: start: 20130822, end: 20130822
  2. PRIVIGEN [Suspect]
     Active Substance: HUMAN IMMUNOGLOBULIN G
     Dosage: 5 GM; 105 GM/DAY TOTAL
     Route: 042
     Dates: start: 20130822, end: 20130822
  3. PRIVIGEN [Suspect]
     Active Substance: HUMAN IMMUNOGLOBULIN G
     Dosage: 5 GM; 105 GM/DAY TOTAL
     Route: 042
     Dates: start: 20130821, end: 20130821
  4. PRIVIGEN [Suspect]
     Active Substance: HUMAN IMMUNOGLOBULIN G
     Indication: IMMUNE THROMBOCYTOPENIC PURPURA
     Dosage: 20 GM;TOTAL DOSE/DAY =105 GM
     Route: 042
     Dates: start: 20130821, end: 20130821

REACTIONS (1)
  - Haemolysis [Unknown]

NARRATIVE: CASE EVENT DATE: 20130823
